FAERS Safety Report 5400509-8 (Version None)
Quarter: 2007Q3

REPORT INFORMATION
  Report Type: 
  Country: None (occurrence: None)
  Receive Date: 20070730
  Receipt Date: 20070719
  Transmission Date: 20080115
  Serious: Yes (Other)
  Sender: FDA-Public Use
  Company Number: DE-GENENTECH-244989

PATIENT
  Age: 68 Year
  Sex: Female
  Weight: 78 kg

DRUGS (8)
  1. RITUXIMAB [Suspect]
     Indication: NON-HODGKIN'S LYMPHOMA
     Dosage: 678 MG, UNK
     Route: 042
     Dates: start: 20060817, end: 20060915
  2. RITUXIMAB [Suspect]
     Dosage: 633 MG, UNK
     Route: 042
     Dates: start: 20061011, end: 20061214
  3. RITUXIMAB [Suspect]
     Dosage: 630 MG, UNK
     Route: 042
     Dates: start: 20061123
  4. RITUXIMAB [Suspect]
     Dosage: 637 MG, UNK
     Route: 042
     Dates: start: 20070105, end: 20070125
  5. CYCLOPHOSPHAMIDE [Concomitant]
     Indication: NON-HODGKIN'S LYMPHOMA
     Dosage: UNK, Q3W
     Route: 042
     Dates: end: 20070126
  6. DOXORUBICIN HCL [Concomitant]
     Indication: NON-HODGKIN'S LYMPHOMA
     Dosage: UNK, Q3W
     Route: 042
     Dates: end: 20070126
  7. VINCRISTINE [Concomitant]
     Indication: NON-HODGKIN'S LYMPHOMA
     Dosage: UNK, Q3W
     Route: 042
     Dates: end: 20070126
  8. PREDNISONE TAB [Concomitant]
     Indication: NON-HODGKIN'S LYMPHOMA
     Dosage: UNK, Q3W
     Route: 042
     Dates: end: 20070126

REACTIONS (5)
  - BLOOD BILIRUBIN INCREASED [None]
  - CATHETER RELATED INFECTION [None]
  - FEBRILE NEUTROPENIA [None]
  - LEUKOPENIA [None]
  - THROMBOCYTOPENIA [None]
